FAERS Safety Report 7964043-3 (Version None)
Quarter: 2011Q4

REPORT INFORMATION
  Report Type: 
  Country: None (occurrence: None)
  Receive Date: 20111208
  Receipt Date: 20111111
  Transmission Date: 20120403
  Serious: No
  Sender: FDA-Public Use
  Company Number: US-BAYER-2011-110464

PATIENT
  Age: 67 Year
  Sex: Female
  Weight: 100 kg

DRUGS (9)
  1. DIURETICS [Concomitant]
  2. ASPIRIN [Concomitant]
  3. CRANBERRY SUPPLEMENT/VITAMIN C [Concomitant]
  4. ALEVE (CAPLET) [Suspect]
     Indication: ARTHRITIS
     Dosage: 1 DF, QD
     Route: 048
     Dates: start: 20111111
  5. ANTIHYPERTENSIVES [Concomitant]
  6. CALCIUM W/VITAMIN D NOS [Concomitant]
  7. BONIVA [Concomitant]
  8. NEXIUM [Concomitant]
  9. CHOLESTEROL- AND TRIGLYCERIDE REDUCERS [Concomitant]

REACTIONS (1)
  - ARTHRALGIA [None]
